FAERS Safety Report 6937548-1 (Version None)
Quarter: 2010Q3

REPORT INFORMATION
  Report Type: 
  Country: None (occurrence: None)
  Receive Date: 20100823
  Receipt Date: 20100823
  Transmission Date: 20110219
  Serious: Yes (Other)
  Sender: FDA-Public Use
  Company Number: None

PATIENT
  Age: 66 Year
  Sex: Female
  Weight: 104 kg

DRUGS (1)
  1. EPOPROSTENOL SODIUM [Suspect]
     Dosage: 10MCG/ML CONTINUOUS INHAL
     Route: 055
     Dates: start: 20100611, end: 20100614

REACTIONS (2)
  - CARDIOGENIC SHOCK [None]
  - SHOCK [None]
